FAERS Safety Report 23610163 (Version 1)
Quarter: 2024Q1

REPORT INFORMATION
  Report Type: Spontaneous
  Country: PL (occurrence: PL)
  Receive Date: 20240308
  Receipt Date: 20240308
  Transmission Date: 20240410
  Serious: Yes (Other)
  Sender: FDA-Public Use
  Company Number: PL-SUN PHARMACEUTICAL INDUSTRIES LTD-2024R1-434792

PATIENT
  Age: 24 Year
  Sex: Female

DRUGS (2)
  1. ASPIRIN [Suspect]
     Active Substance: ASPIRIN
     Indication: Antiplatelet therapy
     Dosage: 75 MILLIGRAM, OD
     Route: 065
  2. BISOPROLOL [Suspect]
     Active Substance: BISOPROLOL\BISOPROLOL FUMARATE
     Indication: Blood pressure management
     Dosage: 5 MILLIGRAM, OD
     Route: 065

REACTIONS (5)
  - Exposure during pregnancy [Unknown]
  - Transient ischaemic attack [Recovered/Resolved]
  - Amaurosis fugax [Recovered/Resolved]
  - Aphasia [Recovered/Resolved]
  - Live birth [Unknown]
